FAERS Safety Report 24268833 (Version 4)
Quarter: 2025Q2

REPORT INFORMATION
  Report Type: Report from Study
  Country: US (occurrence: US)
  Receive Date: 20240830
  Receipt Date: 20250401
  Transmission Date: 20250717
  Serious: Yes (Hospitalization, Other)
  Sender: ABBVIE
  Company Number: US-ABBVIE-5896390

PATIENT
  Age: 77 Year
  Sex: Male
  Weight: 79 kg

DRUGS (9)
  1. SKYRIZI [Suspect]
     Active Substance: RISANKIZUMAB-RZAA
     Indication: Psoriasis
     Dosage: FORM STRENGTH: 150 MILLIGRAM
     Route: 058
     Dates: start: 20230411
  2. SKYRIZI [Suspect]
     Active Substance: RISANKIZUMAB-RZAA
     Route: 058
     Dates: start: 20210101
  3. TIMOLOL [Concomitant]
     Active Substance: TIMOLOL
     Indication: Glaucoma
  4. LUMIGAN [Concomitant]
     Active Substance: BIMATOPROST
     Indication: Glaucoma
     Route: 047
  5. LISINOPRIL [Concomitant]
     Active Substance: LISINOPRIL
     Indication: Hypertension
     Dosage: FORM STRENGTH: 40 MILLIGRAM
  6. MONTELUKAST [Concomitant]
     Active Substance: MONTELUKAST
     Indication: Seasonal allergy
     Dosage: FORM STRENGTH: 10 MILLIGRAM
  7. BRIMONIDINE TARTRATE [Concomitant]
     Active Substance: BRIMONIDINE TARTRATE
     Indication: Glaucoma
  8. PROPRANOLOL HYDROCHLORIDE [Concomitant]
     Active Substance: PROPRANOLOL HYDROCHLORIDE
     Indication: Tremor
     Dosage: FORM STRENGTH: 20 MILLIGRAM
  9. PRIMIDONE [Concomitant]
     Active Substance: PRIMIDONE
     Indication: Tremor
     Dosage: FORM STRENGTH: 50 MILLIGRAM

REACTIONS (9)
  - Inguinal hernia [Recovered/Resolved]
  - Balance disorder [Recovering/Resolving]
  - Abdominal discomfort [Recovered/Resolved]
  - Gastrointestinal disorder [Recovered/Resolved]
  - Precancerous condition [Recovered/Resolved]
  - Rash macular [Recovering/Resolving]
  - Induration [Recovered/Resolved]
  - Weight decreased [Recovering/Resolving]
  - Vomiting [Recovered/Resolved]

NARRATIVE: CASE EVENT DATE: 20240101
